FAERS Safety Report 5658313-1 (Version None)
Quarter: 2008Q1

REPORT INFORMATION
  Report Type: 
  Country: None (occurrence: None)
  Receive Date: 20080310
  Receipt Date: 20070122
  Transmission Date: 20080703
  Serious: No
  Sender: FDA-Public Use
  Company Number: US-BAYER-200710240BCC

PATIENT
  Age: 88 Year
  Sex: Female
  Weight: 61 kg

DRUGS (4)
  1. ALEVE [Suspect]
     Indication: PAIN IN EXTREMITY
     Dosage: TOTAL DAILY DOSE: 220 MG  UNIT DOSE: 220 MG
     Dates: start: 20061201
  2. PRILOSEC [Concomitant]
  3. LIPITOR [Concomitant]
  4. ACIDOPHILUS [Concomitant]

REACTIONS (1)
  - BLOOD PRESSURE INCREASED [None]
